FAERS Safety Report 6113890-1 (Version None)
Quarter: 2009Q1

REPORT INFORMATION
  Report Type: 
  Country: None (occurrence: None)
  Receive Date: 20090312
  Receipt Date: 20080827
  Transmission Date: 20090719
  Serious: Yes (Hospitalization)
  Sender: FDA-Public Use
  Company Number: US-ABBOTT-08P-163-0465312-00

PATIENT
  Sex: Female
  Weight: 57.658 kg

DRUGS (7)
  1. LUPRON DEPOT [Suspect]
     Indication: ENDOMETRIOSIS
     Route: 030
     Dates: start: 20080101, end: 20080417
  2. TOPIRAMATE [Concomitant]
     Indication: HEADACHE
     Route: 048
     Dates: start: 20071201
  3. TOPIRAMATE [Concomitant]
     Indication: CONVULSION
  4. LEVETIRACETAM [Concomitant]
     Indication: CONVULSION
     Route: 048
  5. FOLIC ACID [Concomitant]
     Indication: BLOOD FOLATE DECREASED
     Route: 048
     Dates: start: 20080301
  6. BENADRYL [Concomitant]
     Indication: INSOMNIA
     Route: 048
  7. ZOLPIDEM TARTRATE [Concomitant]
     Indication: INSOMNIA
     Route: 048

REACTIONS (7)
  - BLOOD ALKALINE PHOSPHATASE DECREASED [None]
  - INFLUENZA LIKE ILLNESS [None]
  - LEUKOPENIA [None]
  - LYMPHADENOPATHY [None]
  - NIGHT SWEATS [None]
  - SCAN GALLIUM ABNORMAL [None]
  - WEIGHT DECREASED [None]
